FAERS Safety Report 23624370 (Version 1)
Quarter: 2024Q1

REPORT INFORMATION
  Report Type: Spontaneous
  Country: FR (occurrence: FR)
  Receive Date: 20240312
  Receipt Date: 20240312
  Transmission Date: 20240410
  Serious: Yes (Other)
  Sender: FDA-Public Use
  Company Number: None

PATIENT
  Age: 57 Year
  Sex: Female

DRUGS (4)
  1. TECFIDERA [Suspect]
     Active Substance: DIMETHYL FUMARATE
     Indication: Multiple sclerosis
     Dosage: 240 MG MORNING AND EVENING
     Route: 050
  2. NIMOTOP [Concomitant]
     Active Substance: NIMODIPINE
     Indication: Product used for unknown indication
     Route: 050
  3. NEURONTIN [Concomitant]
     Active Substance: GABAPENTIN
     Indication: Neuralgia
     Dosage: 300MG IF PAIN
     Route: 050
  4. MECIR L.P [Concomitant]
     Indication: Product used for unknown indication
     Dosage: 0.4 MG, EXTENDED-RELASE, MORNING AND EVENING
     Route: 050

REACTIONS (1)
  - Hepatic cytolysis [Recovered/Resolved]

NARRATIVE: CASE EVENT DATE: 20231125
